FAERS Safety Report 5366174-3 (Version None)
Quarter: 2007Q2

REPORT INFORMATION
  Report Type: 
  Country: None (occurrence: None)
  Receive Date: 20070611
  Receipt Date: 20070105
  Transmission Date: 20071010
  Serious: Yes (Death, Other)
  Sender: FDA-Public Use
  Company Number: USA-2007-0026133

PATIENT
  Age: 16 Year
  Sex: Male
  Weight: 85.3 kg

DRUGS (4)
  1. OXYCONTIN [Suspect]
     Indication: DRUG ABUSER
     Dosage: SEE IMAGE
  2. XANAX [Suspect]
     Indication: DRUG ABUSER
     Dosage: SEE IMAGE
  3. FENTANYL [Suspect]
     Indication: DRUG ABUSER
     Dosage: SEE IMAGE
  4. OXYMORPHONE (OXYMORPHONE) [Suspect]
     Indication: DRUG ABUSER
     Dosage: SEE IMAGE

REACTIONS (3)
  - DRUG DEPENDENCE [None]
  - RESPIRATORY ARREST [None]
  - SUBSTANCE ABUSE [None]
